FAERS Safety Report 11102316 (Version 1)
Quarter: 2015Q2

REPORT INFORMATION
  Report Type: Spontaneous
  Country: PL (occurrence: PL)
  Receive Date: 20150511
  Receipt Date: 20150511
  Transmission Date: 20150821
  Serious: Yes (Other)
  Sender: FDA-Public Use
  Company Number: PL-TEVA-561620ISR

PATIENT
  Age: 30 Year
  Sex: Female

DRUGS (4)
  1. PERAZINE [Suspect]
     Active Substance: PERAZINE
     Indication: SCHIZOPHRENIA
     Dosage: 100 MILLIGRAM DAILY;
     Route: 065
  2. RISPERIDONE. [Suspect]
     Active Substance: RISPERIDONE
     Indication: SCHIZOPHRENIA
     Route: 065
  3. ARIPIPRAZOLE. [Suspect]
     Active Substance: ARIPIPRAZOLE
     Indication: SCHIZOPHRENIA
     Dosage: 30 MILLIGRAM DAILY;
     Route: 065
  4. CARBAMAZEPINE. [Concomitant]
     Active Substance: CARBAMAZEPINE
     Indication: SCHIZOPHRENIA
     Dosage: 800 MILLIGRAM DAILY;
     Route: 065

REACTIONS (13)
  - Oral mucosal erythema [Unknown]
  - Dry mouth [Recovered/Resolved]
  - Stomatitis [Recovered/Resolved]
  - Breath odour [Unknown]
  - Mucosal inflammation [Unknown]
  - Aptyalism [Unknown]
  - Burning sensation [Unknown]
  - Oropharyngeal pain [Unknown]
  - Sleep disorder [Unknown]
  - Dental caries [Recovered/Resolved]
  - Dry throat [Unknown]
  - Dental plaque [Recovered/Resolved]
  - Mucosal dryness [Unknown]
